FAERS Safety Report 12451377 (Version 1)
Quarter: 2016Q2

REPORT INFORMATION
  Report Type: Spontaneous
  Country: US (occurrence: None)
  Receive Date: 20160608
  Receipt Date: 20160608
  Transmission Date: 20160815
  Serious: No
  Sender: FDA-Public Use
  Company Number: None

PATIENT
  Age: 70 Year
  Sex: Male

DRUGS (1)
  1. TETRABENAZINE. [Suspect]
     Active Substance: TETRABENAZINE
     Indication: DYSKINESIA
     Dosage: 12.5MG TAKE 1 TABLET TWICE DAILY PO
     Route: 048
     Dates: start: 20150605, end: 20160603

REACTIONS (5)
  - Therapy cessation [None]
  - Rash [None]
  - Cold sweat [None]
  - Blister [None]
  - Decreased appetite [None]

NARRATIVE: CASE EVENT DATE: 20160603
